FAERS Safety Report 23308819 (Version 1)
Quarter: 2023Q4

REPORT INFORMATION
  Report Type: Spontaneous
  Country: PT (occurrence: PT)
  Receive Date: 20231218
  Receipt Date: 20231218
  Transmission Date: 20240110
  Serious: Yes (Disabling)
  Sender: FDA-Public Use
  Company Number: None

PATIENT
  Age: 36 Year
  Sex: Female
  Weight: 80 kg

DRUGS (2)
  1. DROSPIRENONE [Suspect]
     Active Substance: DROSPIRENONE
     Indication: Uterine leiomyoma
     Dosage: 1 COMPRIMIDO POR DIA
     Route: 048
     Dates: start: 20230501, end: 20231123
  2. DROSPIRENONE [Suspect]
     Active Substance: DROSPIRENONE
     Indication: Contraception

REACTIONS (5)
  - Loss of libido [Recovered/Resolved]
  - Mood altered [Recovered/Resolved]
  - Dysmenorrhoea [Recovered/Resolved]
  - Dysmenorrhoea [Recovered/Resolved]
  - Menstruation irregular [Recovered/Resolved]

NARRATIVE: CASE EVENT DATE: 20230901
